FAERS Safety Report 4509212-X (Version None)
Quarter: 2004Q4

REPORT INFORMATION
  Report Type: 
  Country: None (occurrence: None)
  Receive Date: 20041123
  Receipt Date: 20030605
  Transmission Date: 20050328
  Serious: Yes (Other)
  Sender: FDA-Public Use
  Company Number: US-MERCK-0306USA00737

PATIENT
  Age: 27 Year
  Sex: Female

DRUGS (1)
  1. VIOXX [Suspect]
     Route: 048

REACTIONS (4)
  - ADVERSE EVENT [None]
  - ANGINA PECTORIS [None]
  - BLOOD PRESSURE INCREASED [None]
  - CONVULSION [None]
